FAERS Safety Report 15271707 (Version 1)
Quarter: 2018Q3

REPORT INFORMATION
  Report Type: Spontaneous
  Country: US (occurrence: US)
  Receive Date: 20180813
  Receipt Date: 20180813
  Transmission Date: 20181010
  Serious: No
  Sender: FDA-Public Use
  Company Number: US-MISSION PHARMACAL COMPANY-2053628

PATIENT
  Age: 74 Year
  Sex: Male

DRUGS (15)
  1. POTASSIUM CITRATE. [Suspect]
     Active Substance: POTASSIUM CITRATE
     Indication: BLOOD POTASSIUM DECREASED
     Route: 048
  2. VALSARTAN. [Concomitant]
     Active Substance: VALSARTAN
  3. MULTIVITAMIN [Concomitant]
     Active Substance: VITAMINS
  4. GLUCOSAMINE MSM COMBINATION [Concomitant]
  5. LORATADINE. [Concomitant]
     Active Substance: LORATADINE
  6. ASPIRIN. [Concomitant]
     Active Substance: ASPIRIN
  7. AMLODIPINE [Concomitant]
     Active Substance: AMLODIPINE BESYLATE
  8. OMEGA 3 [Concomitant]
     Active Substance: OMEGA-3 FATTY ACIDS
  9. ATORVASTATIN CALCIUM. [Concomitant]
     Active Substance: ATORVASTATIN CALCIUM
  10. TESTOSTERONE. [Concomitant]
     Active Substance: TESTOSTERONE
     Route: 061
  11. CHLORTHALIDONE. [Concomitant]
     Active Substance: CHLORTHALIDONE
  12. CALCIUM CARBONATE WITH VITAMIN D (CHOLECALCIFEROL) [Concomitant]
     Active Substance: CALCIUM CARBONATE\CHOLECALCIFEROL
  13. TAMSULOSIN 0.4MG [Concomitant]
     Active Substance: TAMSULOSIN
  14. OMEPRAZOLE. [Concomitant]
     Active Substance: OMEPRAZOLE
  15. GLUCOSAMINE CHONDRIOTIN [Concomitant]

REACTIONS (1)
  - Blood potassium decreased [Unknown]
